FAERS Safety Report 6668198-2 (Version None)
Quarter: 2010Q2

REPORT INFORMATION
  Report Type: 
  Country: None (occurrence: None)
  Receive Date: 20100405
  Receipt Date: 20100405
  Transmission Date: 20101027
  Serious: Yes (Hospitalization)
  Sender: FDA-Public Use
  Company Number: None

PATIENT
  Age: 62 Year
  Sex: Male
  Weight: 109.3 kg

DRUGS (2)
  1. FLUOROURACIL [Suspect]
     Indication: RECTAL CANCER
     Dosage: 5700 MG IV 430/920 MG IV
     Route: 042
     Dates: start: 20100113, end: 20100124
  2. FLUOROURACIL [Suspect]
     Indication: RECTAL CANCER
     Dosage: 5700 MG IV 430/920 MG IV
     Route: 042
     Dates: start: 20100113, end: 20100126

REACTIONS (3)
  - COLITIS ISCHAEMIC [None]
  - LEUKOPENIA [None]
  - RECTAL HAEMORRHAGE [None]
